FAERS Safety Report 20101438 (Version 1)
Quarter: 2021Q4

REPORT INFORMATION
  Report Type: Spontaneous
  Country: GB (occurrence: GB)
  Receive Date: 20211123
  Receipt Date: 20211123
  Transmission Date: 20220303
  Serious: Yes (Other)
  Sender: FDA-Public Use
  Company Number: None

PATIENT
  Age: 53 Year
  Sex: Male

DRUGS (1)
  1. CYCLOSPORINE [Suspect]
     Active Substance: CYCLOSPORINE
     Indication: Ill-defined disorder
     Dosage: UNK(125MG TWICE DAILY)
     Route: 048

REACTIONS (3)
  - Haemoptysis [Unknown]
  - Hot flush [Unknown]
  - Medication error [Unknown]
